FAERS Safety Report 21058751 (Version 1)
Quarter: 2022Q3

REPORT INFORMATION
  Report Type: Spontaneous
  Country: PL (occurrence: PL)
  Receive Date: 20220708
  Receipt Date: 20220708
  Transmission Date: 20221026
  Serious: Yes (Disabling, Other)
  Sender: FDA-Public Use
  Company Number: PL-ALVOGEN-2022-ALVOGEN-120622

PATIENT
  Age: 59 Year
  Sex: Female

DRUGS (11)
  1. FLUOXETINE [Suspect]
     Active Substance: FLUOXETINE HYDROCHLORIDE
     Indication: Mental disorder
  2. HYDROXYZINE [Suspect]
     Active Substance: HYDROXYZINE HYDROCHLORIDE
     Indication: Mental disorder
  3. ESCITALOPRAM [Suspect]
     Active Substance: ESCITALOPRAM OXALATE
     Indication: Mental disorder
  4. PREGABALIN [Suspect]
     Active Substance: PREGABALIN
     Indication: Mental disorder
     Route: 048
     Dates: start: 202005, end: 202009
  5. AGOMELATINE [Suspect]
     Active Substance: AGOMELATINE
     Indication: Mental disorder
  6. SULPIRIDE [Suspect]
     Active Substance: SULPIRIDE
     Indication: Mental disorder
  7. SULPIRIDE [Concomitant]
     Active Substance: SULPIRIDE
     Indication: Product used for unknown indication
  8. MIANSERIN [Concomitant]
     Active Substance: MIANSERIN
     Indication: Product used for unknown indication
  9. NEBIVOLOL [Concomitant]
     Active Substance: NEBIVOLOL
     Indication: Product used for unknown indication
  10. HYDROXYZINE HYDROCHLORIDE [Concomitant]
     Active Substance: HYDROXYZINE HYDROCHLORIDE
     Indication: Product used for unknown indication
     Dosage: 25 MG AD HOC, AS NEEDED
  11. AMLODIPINE [Concomitant]
     Active Substance: AMLODIPINE BESYLATE
     Indication: Hypertension
     Dosage: 2.5 MG IN MORNING AND IN EVENING

REACTIONS (12)
  - Sedation complication [Recovered/Resolved]
  - Drug ineffective [Unknown]
  - Hepatic enzyme increased [Unknown]
  - Enuresis [Recovered/Resolved]
  - Anxiety [Unknown]
  - Psychomotor hyperactivity [Unknown]
  - Tremor [Unknown]
  - Insomnia [Unknown]
  - Panic reaction [Unknown]
  - Fear [Unknown]
  - Hypertension [Unknown]
  - Drug intolerance [Unknown]
